FAERS Safety Report 8798506 (Version 1)
Quarter: 2012Q4

REPORT INFORMATION
  Report Type: 
  Country: US (occurrence: US)
  Receive Date: 20120920
  Receipt Date: 20120920
  Transmission Date: 20130627
  Serious: No
  Sender: FDA-Public Use
  Company Number: US-B.I. PHARMACEUTICALS,INC./RIDGEFIELD-2012-BP-22734BP

PATIENT
  Age: 83 Year
  Sex: Female
  Weight: 100 kg

DRUGS (4)
  1. PRADAXA [Suspect]
     Indication: ATRIAL FIBRILLATION
     Dosage: 75 mg
     Route: 048
     Dates: start: 201107
  2. AMRYL [Concomitant]
     Indication: TYPE 2 DIABETES MELLITUS
     Dosage: 6 mg
     Route: 048
     Dates: start: 201201
  3. LANTUS [Concomitant]
     Indication: TYPE 2 DIABETES MELLITUS
     Dosage: 64 U
     Route: 058
  4. ANASTROZOLE [Concomitant]
     Indication: HORMONE THERAPY
     Dosage: 1 mg
     Route: 048

REACTIONS (3)
  - Glycosylated haemoglobin increased [Not Recovered/Not Resolved]
  - Skin discolouration [Recovered/Resolved]
  - Haemorrhage [Not Recovered/Not Resolved]
